FAERS Safety Report 10979806 (Version 1)
Quarter: 2015Q2

REPORT INFORMATION
  Report Type: Spontaneous
  Country: US (occurrence: US)
  Receive Date: 20150402
  Receipt Date: 20150402
  Transmission Date: 20150821
  Serious: No
  Sender: FDA-Public Use
  Company Number: US-SA-2014SA034709

PATIENT
  Sex: Female

DRUGS (4)
  1. VITAMIN B6 [Concomitant]
     Active Substance: PYRIDOXINE HYDROCHLORIDE
  2. ALLEGRA [Suspect]
     Active Substance: FEXOFENADINE HYDROCHLORIDE
     Route: 048
  3. PANTHENOL/RETINOL/THIAMINE HYDROCHLORIDE/ASCORBIC ACID/ERGOCALCIFEROL/FOLIC ACID/RIBOFLAVIN/NICOTINA [Concomitant]
  4. VITAMIN D [Concomitant]
     Active Substance: CHOLECALCIFEROL

REACTIONS (2)
  - Underdose [Unknown]
  - Drug ineffective [Unknown]
